FAERS Safety Report 9006224 (Version 1)
Quarter: 2013Q1

REPORT INFORMATION
  Report Type: Spontaneous
  Country: US (occurrence: US)
  Receive Date: 20130110
  Receipt Date: 20130110
  Transmission Date: 20140127
  Serious: No
  Sender: FDA-Public Use
  Company Number: US-009507513-1301USA002200

PATIENT
  Sex: Male

DRUGS (6)
  1. VICTRELIS [Suspect]
     Dosage: UNK
     Route: 048
     Dates: start: 201211, end: 201211
  2. PEGASYS [Suspect]
  3. RIBAVIRIN (WARRICK) [Suspect]
     Route: 048
  4. LOSARTAN POTASSIUM [Concomitant]
  5. BUPROPION HYDROCHLORIDE [Concomitant]
  6. PRAVASTATIN SODIUM [Concomitant]

REACTIONS (2)
  - White blood cell count decreased [Unknown]
  - Feeling abnormal [Unknown]
